FAERS Safety Report 14961879 (Version 2)
Quarter: 2020Q3

REPORT INFORMATION
  Report Type: Report from Study
  Country: CA (occurrence: CA)
  Receive Date: 20180601
  Receipt Date: 20200706
  Transmission Date: 20201102
  Serious: Yes (Other)
  Sender: FDA-Public Use
  Company Number: CA-ROCHE-2130989

PATIENT
  Age: 80 Year
  Sex: Male
  Weight: 73 kg

DRUGS (13)
  1. OZONE [Concomitant]
     Active Substance: OZONE
     Route: 065
  2. RITUXAN [Suspect]
     Active Substance: RITUXIMAB
     Indication: NON-HODGKIN^S LYMPHOMA
     Route: 065
     Dates: start: 2013, end: 2018
  3. DIPHENHYDRAMINE HCL [Concomitant]
     Active Substance: DIPHENHYDRAMINE HYDROCHLORIDE
     Indication: PREMEDICATION
     Route: 048
     Dates: start: 20180911
  4. RITUXAN [Suspect]
     Active Substance: RITUXIMAB
     Indication: DIFFUSE LARGE B-CELL LYMPHOMA
  5. SYNTHROID [Concomitant]
     Active Substance: LEVOTHYROXINE SODIUM
     Route: 065
  6. RITUXAN [Suspect]
     Active Substance: RITUXIMAB
     Indication: NON-HODGKIN^S LYMPHOMA
     Dosage: ***RECEIVED OUTSIDE RPAP
     Route: 042
  7. OXYGEN. [Concomitant]
     Active Substance: OXYGEN
  8. PREDNISONE. [Concomitant]
     Active Substance: PREDNISONE
     Route: 065
     Dates: start: 20200501
  9. XARELTO [Concomitant]
     Active Substance: RIVAROXABAN
     Route: 065
  10. RITUXAN [Suspect]
     Active Substance: RITUXIMAB
     Dosage: (1ST RPAP DOSE)
     Route: 042
     Dates: start: 20180911
  11. RITUXAN [Suspect]
     Active Substance: RITUXIMAB
     Route: 042
     Dates: start: 20200212
  12. ACETAMINOPHEN. [Concomitant]
     Active Substance: ACETAMINOPHEN
     Indication: PREMEDICATION
     Route: 048
     Dates: start: 20180911
  13. ACETAMINOPHEN. [Concomitant]
     Active Substance: ACETAMINOPHEN
     Route: 048

REACTIONS (15)
  - Beta 2 microglobulin increased [Unknown]
  - Blood pressure fluctuation [Not Recovered/Not Resolved]
  - Weight increased [Recovering/Resolving]
  - Blood pressure fluctuation [Unknown]
  - Jugular vein thrombosis [Not Recovered/Not Resolved]
  - Ventricular extrasystoles [Not Recovered/Not Resolved]
  - Anaemia [Unknown]
  - Blood pressure increased [Unknown]
  - Blood pressure systolic increased [Unknown]
  - Bundle branch block right [Not Recovered/Not Resolved]
  - Haemangioma of liver [Unknown]
  - Blood pressure diastolic increased [Unknown]
  - Intracardiac thrombus [Unknown]
  - Leukopenia [Unknown]
  - Body temperature decreased [Unknown]

NARRATIVE: CASE EVENT DATE: 20181218
